FAERS Safety Report 14836849 (Version 1)
Quarter: 2018Q2

REPORT INFORMATION
  Report Type: Spontaneous
  Country: FR (occurrence: FR)
  Receive Date: 20180502
  Receipt Date: 20180502
  Transmission Date: 20180711
  Serious: Yes (Other)
  Sender: FDA-Public Use
  Company Number: FR-MERCK KGAA-2046982

PATIENT
  Age: 70 Year
  Sex: Female

DRUGS (1)
  1. NOVOTHYROX [Suspect]
     Active Substance: LEVOTHYROXINE SODIUM
     Indication: PRODUCT USED FOR UNKNOWN INDICATION

REACTIONS (25)
  - Alanine aminotransferase increased [None]
  - Hypersensitivity [None]
  - Insomnia [None]
  - Heart rate abnormal [None]
  - Palpitations [None]
  - Nervousness [None]
  - Disturbance in attention [None]
  - Blood glucose increased [Recovered/Resolved]
  - Fatigue [None]
  - Asthma [None]
  - Asthenia [None]
  - Blood alkaline phosphatase increased [None]
  - Depression [None]
  - Bradyphrenia [None]
  - Hypokinesia [None]
  - Antisocial personality disorder [None]
  - Decreased interest [None]
  - General physical health deterioration [None]
  - Diarrhoea [None]
  - Crying [None]
  - Mood swings [None]
  - Blood triglycerides increased [None]
  - Cardiac disorder [None]
  - Gamma-glutamyltransferase increased [None]
  - Vision blurred [None]

NARRATIVE: CASE EVENT DATE: 20170316
